FAERS Safety Report 15019909 (Version 2)
Quarter: 2018Q3

REPORT INFORMATION
  Report Type: Report from Study
  Country: None (occurrence: US)
  Receive Date: 20180618
  Receipt Date: 20180820
  Transmission Date: 20181010
  Serious: Yes (Hospitalization, Other)
  Sender: FDA-Public Use
  Company Number: US-ABBVIE-18K-163-2387547-00

PATIENT
  Age: 34 Year
  Sex: Female

DRUGS (1)
  1. HUMIRA [Suspect]
     Active Substance: ADALIMUMAB
     Indication: CROHN^S DISEASE
     Route: 058
     Dates: start: 20180430, end: 201806

REACTIONS (8)
  - Intestinal cyst [Recovered/Resolved]
  - Inflammation [Unknown]
  - Abscess [Recovered/Resolved]
  - Intestinal obstruction [Unknown]
  - Arthralgia [Recovered/Resolved]
  - Medical device site infection [Recovering/Resolving]
  - Medical device site rash [Recovered/Resolved]
  - Medical device site swelling [Recovered/Resolved]

NARRATIVE: CASE EVENT DATE: 201806
